FAERS Safety Report 9735900 (Version 3)
Quarter: 2015Q3

REPORT INFORMATION
  Report Type: Spontaneous
  Country: US (occurrence: US)
  Receive Date: 20131206
  Receipt Date: 20150804
  Transmission Date: 20151125
  Serious: No
  Sender: FDA-Public Use
  Company Number: US-GILEAD-2009-0024092

PATIENT
  Age: 31 Year
  Sex: Female
  Weight: 68.95 kg

DRUGS (19)
  1. VERAPAMIL [Concomitant]
     Active Substance: VERAPAMIL HYDROCHLORIDE
  2. SPIRONOLACTONE. [Concomitant]
     Active Substance: SPIRONOLACTONE
  3. VITAMIN C [Concomitant]
     Active Substance: ASCORBIC ACID
  4. LETAIRIS [Suspect]
     Active Substance: AMBRISENTAN
     Indication: PULMONARY ARTERIAL HYPERTENSION
     Route: 048
     Dates: start: 20080619
  5. LASIX [Concomitant]
     Active Substance: FUROSEMIDE
  6. MECLIZINE [Concomitant]
     Active Substance: MECLIZINE\MECLIZINE HYDROCHLORIDE
  7. OXYGEN. [Concomitant]
     Active Substance: OXYGEN
  8. POTASSIUM CHLORIDE. [Concomitant]
     Active Substance: POTASSIUM CHLORIDE
  9. ADCIRCA [Concomitant]
     Active Substance: TADALAFIL
  10. EXCEDRIN [Concomitant]
     Active Substance: ACETAMINOPHEN\ASPIRIN\CAFFEINE
  11. ERGOCALCIFEROL/NICOTINAMIDE/RETINOL/ASCORBIC ACID/FOLIC ACID/PANTHENOL/RIBOFLAVIN/THIAMINE HYDROCHLO [Concomitant]
  12. YAZ 28 [Concomitant]
  13. ZINC OXIDE. [Concomitant]
     Active Substance: ZINC OXIDE
  14. LASIX [Concomitant]
     Active Substance: FUROSEMIDE
  15. ATENOLOL. [Concomitant]
     Active Substance: ATENOLOL
  16. PENICILLIN [Concomitant]
     Active Substance: PENICILLIN
  17. ACYCLOVIR. [Concomitant]
     Active Substance: ACYCLOVIR
  18. TYLENOL [Concomitant]
     Active Substance: ACETAMINOPHEN
  19. ASPIRIN. [Concomitant]
     Active Substance: ASPIRIN

REACTIONS (1)
  - Ocular hyperaemia [Unknown]
